FAERS Safety Report 8071358-X (Version None)
Quarter: 2012Q1

REPORT INFORMATION
  Report Type: 
  Country: None (occurrence: None)
  Receive Date: 20120125
  Receipt Date: 20120118
  Transmission Date: 20120608
  Serious: Yes (Other)
  Sender: FDA-Public Use
  Company Number: US-PFIZER INC-2012015811

PATIENT
  Sex: Male
  Weight: 108.84 kg

DRUGS (7)
  1. GABAPENTIN [Suspect]
     Indication: NERVE INJURY
  2. HYDROCHLOROTHIAZIDE [Suspect]
     Indication: HYPERTENSION
     Dosage: 25 MG, DAILY
     Dates: start: 20111222, end: 20111201
  3. GABAPENTIN [Suspect]
     Indication: NEUROPATHY PERIPHERAL
     Dosage: 600 MG, AS NEEDED
     Route: 048
  4. ACETYLSALICYLIC ACID [Concomitant]
     Indication: ARTHRITIS
  5. TRAMADOL [Concomitant]
     Indication: ARTHRITIS
     Dosage: 150 MG, 4X/DAY
     Route: 048
  6. LISINOPRIL [Suspect]
     Indication: HYPERTENSION
     Dosage: 10 MG, DAILY
     Dates: start: 20111222, end: 20111201
  7. ACETYLSALICYLIC ACID [Concomitant]
     Indication: HEADACHE
     Dosage: 1600 MG, DAILY

REACTIONS (11)
  - DYSKINESIA [None]
  - SOMNOLENCE [None]
  - COORDINATION ABNORMAL [None]
  - FATIGUE [None]
  - AMNESIA [None]
  - DIZZINESS [None]
  - NASOPHARYNGITIS [None]
  - NAUSEA [None]
  - EYE MOVEMENT DISORDER [None]
  - DIPLOPIA [None]
  - PYREXIA [None]
